FAERS Safety Report 9788457 (Version 1)
Quarter: 2013Q4

REPORT INFORMATION
  Report Type: Spontaneous
  Country: FR (occurrence: FR)
  Receive Date: 20131230
  Receipt Date: 20131230
  Transmission Date: 20140711
  Serious: Yes (Hospitalization)
  Sender: FDA-Public Use
  Company Number: FR-PFIZER INC-2013368729

PATIENT
  Age: 76 Year
  Sex: Female

DRUGS (10)
  1. EUPANTOL [Suspect]
     Indication: GASTROINTESTINAL HAEMORRHAGE
     Dosage: 200 MG, DAILY
     Route: 042
     Dates: start: 20131017, end: 20131021
  2. EUPANTOL [Suspect]
     Dosage: 40 MG, 2X/DAY
     Route: 042
     Dates: start: 20131022
  3. PARACETAMOL [Concomitant]
     Dosage: UNK
  4. CEFTRIAXONE PANPHARMA [Concomitant]
     Dosage: UNK
  5. METRONIDAZOLE [Concomitant]
     Dosage: UNK
  6. HEPARINE SODIQUE [Concomitant]
     Dosage: UNK
  7. TIORFAN [Concomitant]
     Dosage: UNK
  8. ATARAX [Concomitant]
     Dosage: UNK
  9. DIFFU K [Concomitant]
     Dosage: UNK
  10. CHLORURE DE POTASSIUM ^LOGEAIS^ [Concomitant]
     Dosage: UNK

REACTIONS (3)
  - Paranoia [Recovered/Resolved]
  - Confusional state [Recovered/Resolved]
  - Overdose [Unknown]
